FAERS Safety Report 25407277 (Version 1)
Quarter: 2025Q2

REPORT INFORMATION
  Report Type: Spontaneous
  Country: GB (occurrence: None)
  Receive Date: 20250605
  Receipt Date: 20250605
  Transmission Date: 20250716
  Serious: Yes (Disabling)
  Sender: FDA-CTU
  Company Number: None

PATIENT
  Age: 34 Year
  Sex: Female

DRUGS (2)
  1. SERTRALINE [Suspect]
     Active Substance: SERTRALINE HYDROCHLORIDE
     Route: 048
     Dates: start: 20030101, end: 20230201
  2. QUETIAPINE [Concomitant]
     Active Substance: QUETIAPINE

REACTIONS (20)
  - Insomnia [None]
  - Electric shock sensation [None]
  - Muscle spasms [None]
  - Visual impairment [None]
  - Eye pain [None]
  - Paraesthesia [None]
  - Skin burning sensation [None]
  - Dizziness [None]
  - Vertigo [None]
  - Depersonalisation/derealisation disorder [None]
  - Derealisation [None]
  - Psychotic disorder [None]
  - Tinnitus [None]
  - Akathisia [None]
  - Weight decreased [None]
  - Suicidal behaviour [None]
  - Panic attack [None]
  - Vitamin B12 deficiency [None]
  - Drug withdrawal syndrome [None]
  - Post-traumatic stress disorder [None]

NARRATIVE: CASE EVENT DATE: 20230201
